FAERS Safety Report 5466325-6 (Version None)
Quarter: 2007Q3

REPORT INFORMATION
  Report Type: 
  Country: None (occurrence: None)
  Receive Date: 20070920
  Receipt Date: 20070914
  Transmission Date: 20080115
  Serious: Yes (Other)
  Sender: FDA-Public Use
  Company Number: 2007SP008967

PATIENT
  Age: 57 Year
  Sex: Male
  Weight: 94.3482 kg

DRUGS (7)
  1. NASONEX [Suspect]
     Indication: ANOSMIA
     Dosage: 2 DF; BID; NAS
     Route: 045
     Dates: start: 19980101
  2. NASONEX [Suspect]
     Indication: POLYP
     Dosage: 2 DF; BID; NAS
     Route: 045
     Dates: start: 19980101
  3. NASONEX [Suspect]
     Indication: SINUSITIS
     Dosage: 2 DF; BID; NAS
     Route: 045
     Dates: start: 19980101
  4. FLOVENT [Suspect]
     Indication: DRUG USE FOR UNKNOWN INDICATION
  5. CORTISONE ACETATE TAB [Suspect]
     Indication: DRUG USE FOR UNKNOWN INDICATION
     Dosage: IM
     Route: 030
  6. STEROIDS [Suspect]
     Indication: DRUG USE FOR UNKNOWN INDICATION
     Dosage: PO
     Route: 048
  7. FLOVENT [Concomitant]

REACTIONS (1)
  - CATARACT SUBCAPSULAR [None]
